FAERS Safety Report 9656275 (Version 7)
Quarter: 2014Q3

REPORT INFORMATION
  Report Type: Report from Study
  Country: CA (occurrence: CA)
  Receive Date: 20131030
  Receipt Date: 20140801
  Transmission Date: 20150326
  Serious: Yes (Hospitalization, Other)
  Sender: FDA-Public Use
  Company Number: CA-ROCHE-1178534

PATIENT
  Age: 80 Year
  Sex: Female
  Weight: 68 kg

DRUGS (16)
  1. RITUXAN [Suspect]
     Active Substance: RITUXIMAB
     Indication: RHEUMATOID ARTHRITIS
     Route: 042
     Dates: start: 20090305
  2. RITUXAN [Suspect]
     Active Substance: RITUXIMAB
     Route: 065
     Dates: start: 20130404
  3. MOXIFLOXACIN [Suspect]
     Active Substance: MOXIFLOXACIN
     Indication: LOCALISED INFECTION
     Route: 042
     Dates: start: 20130711, end: 201307
  4. TYLENOL EXTRA STRENGTH [Concomitant]
     Active Substance: ACETAMINOPHEN
  5. TYLENOL ARTHRITIS PAIN [Concomitant]
     Active Substance: ACETAMINOPHEN
  6. NITROFURANTOIN. [Suspect]
     Active Substance: NITROFURANTOIN
     Indication: LOCALISED INFECTION
     Route: 042
     Dates: start: 20130711, end: 201307
  7. ACTONEL [Concomitant]
     Active Substance: RISEDRONATE SODIUM
  8. HYDROCHLOROTHIAZIDE. [Concomitant]
     Active Substance: HYDROCHLOROTHIAZIDE
  9. RITUXAN [Suspect]
     Active Substance: RITUXIMAB
     Route: 042
     Dates: start: 20090523
  10. THYROXINE [Concomitant]
     Active Substance: LEVOTHYROXINE
  11. ACETAMINOPHEN. [Concomitant]
     Active Substance: ACETAMINOPHEN
     Indication: PREMEDICATION
     Route: 048
     Dates: start: 20120625
  12. ARAVA [Concomitant]
     Active Substance: LEFLUNOMIDE
  13. DIPHENHYDRAMINE HCL [Concomitant]
     Active Substance: DIPHENHYDRAMINE HYDROCHLORIDE
     Indication: PREMEDICATION
     Route: 048
     Dates: start: 20120625
  14. RITUXAN [Suspect]
     Active Substance: RITUXIMAB
     Dosage: RESTARTED
     Route: 065
     Dates: start: 201206
  15. TYLENOL WITH CODEINE [Concomitant]
     Active Substance: ACETAMINOPHEN\CODEINE PHOSPHATE
  16. METHYLPREDNISOLONE [Concomitant]
     Active Substance: METHYLPREDNISOLONE
     Indication: PREMEDICATION
     Route: 042
     Dates: start: 20120625

REACTIONS (14)
  - Infection [Unknown]
  - Spinal osteoarthritis [Unknown]
  - Localised infection [Recovered/Resolved]
  - Blood pressure increased [Recovered/Resolved]
  - Tooth abscess [Recovered/Resolved]
  - Eye pruritus [Not Recovered/Not Resolved]
  - Intraocular pressure increased [Unknown]
  - Rheumatoid arthritis [Not Recovered/Not Resolved]
  - Memory impairment [Unknown]
  - Sinus congestion [Recovered/Resolved]
  - Hypersensitivity [Unknown]
  - Eye infection [Not Recovered/Not Resolved]
  - Cellulitis [Unknown]
  - Cystitis [Recovered/Resolved]

NARRATIVE: CASE EVENT DATE: 2012
